FAERS Safety Report 9076314 (Version 1)
Quarter: 2013Q1

REPORT INFORMATION
  Report Type: Report from Study
  Country: US (occurrence: US)
  Receive Date: 20130129
  Receipt Date: 20130129
  Transmission Date: 20140127
  Serious: No
  Sender: FDA-Public Use
  Company Number: US-ABBOTT-12P-163-0945632-00

PATIENT
  Age: 31 Year
  Sex: Female

DRUGS (4)
  1. HUMIRA 40 MG/0.8 ML PEN [Suspect]
     Indication: CROHN^S DISEASE
     Dosage: LOADING DOSE 03 JUN 2012
     Dates: start: 20120603
  2. PREDNISONE [Concomitant]
     Indication: CROHN^S DISEASE
     Dosage: 20MG DAILY
  3. NORTREL [Concomitant]
     Indication: CONTRACEPTION
     Dosage: 1 PILL DAILY
  4. ZOLOFT [Concomitant]
     Indication: ANXIETY
     Dosage: 100MG DAILY

REACTIONS (2)
  - Pollakiuria [Not Recovered/Not Resolved]
  - Urine abnormality [Not Recovered/Not Resolved]
